FAERS Safety Report 6160459-9 (Version None)
Quarter: 2009Q2

REPORT INFORMATION
  Report Type: 
  Country: None (occurrence: None)
  Receive Date: 20090420
  Receipt Date: 20090407
  Transmission Date: 20091009
  Serious: Yes (Hospitalization)
  Sender: FDA-Public Use
  Company Number: US-JNJFOC-20090303148

PATIENT
  Sex: Male
  Weight: 64.1 kg

DRUGS (3)
  1. REMICADE [Suspect]
     Indication: COLITIS
     Route: 042
  2. METHYLPREDNISOLONE 4MG TAB [Suspect]
     Indication: COLITIS
     Route: 042
  3. METHYLPREDNISOLONE 4MG TAB [Suspect]
     Indication: INFLAMMATORY BOWEL DISEASE
     Route: 042

REACTIONS (1)
  - COLITIS [None]
